FAERS Safety Report 9917026 (Version 1)
Quarter: 2014Q1

REPORT INFORMATION
  Report Type: Spontaneous
  Country: US (occurrence: US)
  Receive Date: 20140221
  Receipt Date: 20140221
  Transmission Date: 20141002
  Serious: Yes (Other)
  Sender: FDA-Public Use
  Company Number: US-GLAXOSMITHKLINE-A1061760A

PATIENT
  Age: 44 Year
  Sex: Female

DRUGS (1)
  1. LAMICTAL XR [Suspect]
     Indication: CONVULSION
     Dosage: 100MG UNKNOWN
     Route: 065
     Dates: start: 20120405

REACTIONS (5)
  - Grand mal convulsion [Unknown]
  - Mental impairment [Unknown]
  - Swelling [Unknown]
  - Speech disorder [Unknown]
  - Therapy cessation [Unknown]
